FAERS Safety Report 7979298-9 (Version None)
Quarter: 2011Q4

REPORT INFORMATION
  Report Type: 
  Country: None (occurrence: None)
  Receive Date: 20111214
  Receipt Date: 20111205
  Transmission Date: 20120403
  Serious: Yes (Death, Life-Threatening)
  Sender: FDA-Public Use
  Company Number: JP-EISAI INC-E7389-01644-SPO-JP

PATIENT
  Sex: Female
  Weight: 71 kg

DRUGS (14)
  1. HALAVEN [Suspect]
     Indication: BREAST CANCER RECURRENT
     Route: 041
     Dates: start: 20111004, end: 20111011
  2. LOXONIN [Concomitant]
     Dosage: UNKNOWN
     Route: 048
  3. HALAVEN [Suspect]
     Indication: METASTASES TO LIVER
  4. DEXAMETHASONE SODIUM PHOSPHATE [Concomitant]
     Dosage: UNKNOWN
     Route: 041
  5. HALAVEN [Suspect]
     Indication: METASTASES TO LUNG
  6. MUCOSTA [Concomitant]
     Dosage: UNKNOWN
     Route: 048
  7. HALAVEN [Suspect]
     Indication: PLEURAL DISORDER
  8. FEMARA [Concomitant]
     Indication: METASTASES TO LIVER
  9. FEMARA [Concomitant]
     Indication: BREAST CANCER
     Dosage: UNKNOWN
     Route: 065
     Dates: end: 20111023
  10. LIPITOR [Concomitant]
     Dosage: UNKNOWN
     Route: 048
  11. LANSOPRAZOLE [Concomitant]
     Dosage: UNKNOWN
     Route: 048
  12. BROTIZOLAM [Concomitant]
     Dosage: UNKNOWN
     Route: 048
  13. ZANTAC [Concomitant]
     Dosage: UNKNOWN
     Route: 041
  14. GRANISETRON [Concomitant]
     Dosage: UNKNOWN
     Route: 041

REACTIONS (2)
  - THROMBOCYTOPENIA [None]
  - HEPATIC FUNCTION ABNORMAL [None]
